FAERS Safety Report 19255940 (Version 1)
Quarter: 2021Q2

REPORT INFORMATION
  Report Type: Spontaneous
  Country: NL (occurrence: NL)
  Receive Date: 20210514
  Receipt Date: 20210514
  Transmission Date: 20210717
  Serious: Yes (Hospitalization, Other)
  Sender: FDA-Public Use
  Company Number: NL-AUROBINDO-AUR-APL-2021-019470

PATIENT
  Age: 66 Year
  Sex: Female
  Weight: 63 kg

DRUGS (7)
  1. ALENDRONIC ACID [Concomitant]
     Active Substance: ALENDRONIC ACID
     Indication: PRODUCT USED FOR UNKNOWN INDICATION
     Dosage: TABLET, 70 MG (MILLIGRAM)
     Route: 065
  2. HYDROCHLOROTHIAZIDE TABLETS 12.5 MG TABLETS [Suspect]
     Active Substance: HYDROCHLOROTHIAZIDE
     Indication: HYPERTENSION
     Dosage: 12.5 MILLIGRAM, ONCE A DAY (1 X PER DAY, 1 PIECE)
     Route: 065
     Dates: start: 2015, end: 20210324
  3. SIMVASTATINE [Concomitant]
     Active Substance: SIMVASTATIN
     Indication: PRODUCT USED FOR UNKNOWN INDICATION
     Dosage: FILM?COATED TABLET, 40 MG (MILLIGRAM)
     Route: 065
  4. GREPID [Concomitant]
     Active Substance: CLOPIDOGREL BESILATE
     Indication: PRODUCT USED FOR UNKNOWN INDICATION
     Dosage: TABLET 75 MG
     Route: 065
  5. AMLODIPINE [Concomitant]
     Active Substance: AMLODIPINE BESYLATE
     Indication: PRODUCT USED FOR UNKNOWN INDICATION
     Dosage: TABLET, 5 MG (MILLIGRAM)
     Route: 065
  6. CICLESONIDE [Concomitant]
     Active Substance: CICLESONIDE
     Indication: PRODUCT USED FOR UNKNOWN INDICATION
     Dosage: AEROSOL, 80 ?G / DOSE (MICROGRAMS PER DOSE)
     Route: 065
  7. COLECALCIFEROL [Concomitant]
     Active Substance: CHOLECALCIFEROL
     Indication: PRODUCT USED FOR UNKNOWN INDICATION
     Dosage: TABLET 20
     Route: 065

REACTIONS (4)
  - Skin cancer [Unknown]
  - Macular fibrosis [Unknown]
  - Cerebrovascular accident [Unknown]
  - Asthma [Unknown]

NARRATIVE: CASE EVENT DATE: 20200928
